FAERS Safety Report 8967596 (Version 3)
Quarter: 2012Q4

REPORT INFORMATION
  Report Type: 
  Country: JP (occurrence: JP)
  Receive Date: 20121214
  Receipt Date: 20121226
  Transmission Date: 20130627
  Serious: Yes (Death)
  Sender: FDA-Public Use
  Company Number: JP-PFIZER INC-2012311910

PATIENT
  Age: 74 Year
  Sex: Male

DRUGS (17)
  1. ADRIACIN [Suspect]
     Indication: LYMPHOMA
     Dosage: UNK
     Route: 042
  2. ADRIACIN [Suspect]
     Indication: PERIPHERAL T-CELL LYMPHOMA UNSPECIFIED
  3. CARBOPLATIN [Concomitant]
     Indication: LYMPHOMA
     Route: 065
  4. CARBOPLATIN [Concomitant]
     Indication: PERIPHERAL T-CELL LYMPHOMA UNSPECIFIED
  5. ETOPOSIDE [Concomitant]
     Indication: LYMPHOMA
     Route: 065
  6. ETOPOSIDE [Concomitant]
     Indication: PERIPHERAL T-CELL LYMPHOMA UNSPECIFIED
  7. VINCRISTINE SULFATE [Concomitant]
     Indication: LYMPHOMA
     Route: 065
  8. VINCRISTINE SULFATE [Concomitant]
     Indication: PERIPHERAL T-CELL LYMPHOMA UNSPECIFIED
  9. CYCLOPHOSPHAMIDE [Concomitant]
     Indication: LYMPHOMA
     Route: 065
  10. CYCLOPHOSPHAMIDE [Concomitant]
     Indication: PERIPHERAL T-CELL LYMPHOMA UNSPECIFIED
  11. PREDNISOLONE [Concomitant]
     Indication: LYMPHOMA
     Route: 065
  12. PREDNISOLONE [Concomitant]
     Indication: PERIPHERAL T-CELL LYMPHOMA UNSPECIFIED
  13. RANIMUSTINE [Concomitant]
     Indication: LYMPHOMA
     Route: 065
  14. RANIMUSTINE [Concomitant]
     Indication: PERIPHERAL T-CELL LYMPHOMA UNSPECIFIED
  15. VINDESINE SULFATE [Concomitant]
     Indication: LYMPHOMA
     Route: 065
  16. VINDESINE SULFATE [Concomitant]
     Indication: PERIPHERAL T-CELL LYMPHOMA UNSPECIFIED
  17. DOXORUBICIN HYDROCHLORIDE [Concomitant]
     Route: 065

REACTIONS (1)
  - Tumour lysis syndrome [Fatal]
